FAERS Safety Report 4809046-2 (Version None)
Quarter: 2005Q4

REPORT INFORMATION
  Report Type: 
  Country: None (occurrence: None)
  Receive Date: 20051021
  Receipt Date: 20050308
  Transmission Date: 20060501
  Serious: Yes (Other)
  Sender: FDA-Public Use
  Company Number: FR_050305991

PATIENT
  Age: 38 Year
  Sex: Male

DRUGS (3)
  1. ZYPREXA [Suspect]
     Dosage: 5 MG WEEK
  2. SOLIAN (AMISULPRIDE) [Concomitant]
  3. DEPAKENE [Concomitant]

REACTIONS (1)
  - CEREBRAL VENOUS THROMBOSIS [None]
